FAERS Safety Report 20075946 (Version 1)
Quarter: 2021Q4

REPORT INFORMATION
  Report Type: Spontaneous
  Country: US (occurrence: US)
  Receive Date: 20211116
  Receipt Date: 20211116
  Transmission Date: 20220303
  Serious: No
  Sender: FDA-Public Use
  Company Number: US-NOVOPROD-768826

PATIENT
  Age: 76 Year
  Sex: Female

DRUGS (1)
  1. TRESIBA [Suspect]
     Active Substance: INSULIN DEGLUDEC
     Indication: Product used for unknown indication
     Dosage: 15 IU, QD
     Route: 058
     Dates: start: 202009

REACTIONS (2)
  - Eyelid rash [Not Recovered/Not Resolved]
  - Dark circles under eyes [Unknown]

NARRATIVE: CASE EVENT DATE: 20201114
